FAERS Safety Report 10119821 (Version 2)
Quarter: 2014Q4

REPORT INFORMATION
  Report Type: Other
  Country: US (occurrence: US)
  Receive Date: 20140425
  Receipt Date: 20141211
  Transmission Date: 20150528
  Serious: Yes (Hospitalization, Other)
  Sender: FDA-Public Use
  Company Number: US-GSKPPD-2014GSK008442

PATIENT
  Age: 60 Year
  Sex: Male

DRUGS (5)
  1. ZOCOR [Concomitant]
     Active Substance: SIMVASTATIN
  2. ASPIRIN. [Concomitant]
     Active Substance: ASPIRIN
  3. AVANDIA [Suspect]
     Active Substance: ROSIGLITAZONE MALEATE
     Indication: DIABETES MELLITUS
     Dosage: DATES OF AVANDIA USE COULD NOT BE CONFIRMED IN RECORDS REVIEWED.
     Route: 048
  4. CARDIZEM [Concomitant]
     Active Substance: DILTIAZEM HYDROCHLORIDE
  5. LASIX [Concomitant]
     Active Substance: FUROSEMIDE

REACTIONS (2)
  - Chest pain [Recovered/Resolved]
  - Myocardial ischaemia [Unknown]

NARRATIVE: CASE EVENT DATE: 20040418
